FAERS Safety Report 8435500-0 (Version None)
Quarter: 2012Q2

REPORT INFORMATION
  Report Type: 
  Country: None (occurrence: None)
  Receive Date: 20120614
  Receipt Date: 20120606
  Transmission Date: 20120825
  Serious: Yes (Other)
  Sender: FDA-Public Use
  Company Number: CA-UCBSA-059224

PATIENT
  Age: 61 Year
  Sex: Female
  Weight: 150 kg

DRUGS (14)
  1. ASPIRIN [Concomitant]
     Indication: PAIN
     Route: 048
  2. VENTOLIN [Concomitant]
     Indication: ASTHMA
     Dosage: UNKNOWN DOSE
     Route: 055
  3. SEREVENT [Concomitant]
     Indication: ASTHMA
     Dosage: UNKNOWN DOSE
     Route: 055
  4. HERBAL HCL MED [Concomitant]
     Indication: HYPERCHOLESTEROLAEMIA
  5. VITAMIN D [Concomitant]
     Indication: SUPPLEMENTATION THERAPY
     Route: 048
  6. CIMZIA [Suspect]
     Dosage: MAINTENANCE DOSE
     Route: 058
     Dates: start: 20120605
  7. LEVOTHYROXINE SODIUM [Concomitant]
     Indication: HYPOTHYROIDISM
     Dosage: UNKNOWN DOSE
     Route: 048
  8. RAMIPRIL [Concomitant]
     Indication: HYPERTENSION
     Dosage: UNKNOWN DOSE
     Route: 048
  9. LASIX [Concomitant]
     Indication: SWELLING
     Dosage: UNKNOWN DOSE
     Route: 048
  10. OMEPRAZOLE (PRISOLEC) [Concomitant]
     Indication: HIATUS HERNIA
     Route: 048
  11. QUERCETIN [Concomitant]
     Indication: SINUS DISORDER
     Route: 048
  12. CALCIUM [Concomitant]
     Indication: SUPPLEMENTATION THERAPY
     Route: 048
  13. ADALAT [Concomitant]
     Indication: HYPERTENSION
     Dosage: UNKNOWN DOSE
     Route: 048
  14. CIMZIA [Suspect]
     Indication: RHEUMATOID ARTHRITIS
     Route: 058
     Dates: start: 20120424, end: 20120522

REACTIONS (1)
  - PSORIASIS [None]
